FAERS Safety Report 18676644 (Version 1)
Quarter: 2020Q4

REPORT INFORMATION
  Report Type: Spontaneous
  Country: BE (occurrence: BE)
  Receive Date: 20201229
  Receipt Date: 20201229
  Transmission Date: 20210114
  Serious: Yes (Other)
  Sender: FDA-Public Use
  Company Number: BE-PFIZER INC-2020497842

PATIENT
  Age: 63 Year
  Sex: Female

DRUGS (6)
  1. CELLTOP [Suspect]
     Active Substance: ETOPOSIDE
     Indication: HODGKIN^S DISEASE
     Dosage: UNK, CYCLIC,1 UNK, CYCLIC, ICE REGIMEN
     Route: 065
     Dates: start: 20201202
  2. UROMITEXAN [Suspect]
     Active Substance: MESNA
     Indication: PROPHYLAXIS
     Dosage: 5 MG/M2, 1X/DAY,MESNA 5MG/M2 DILUTED WITH 5%GLUCOSE 1L
     Route: 042
     Dates: start: 20201202, end: 20201202
  3. GLUCOSE VIAFLO [Suspect]
     Active Substance: DEXTROSE
     Dosage: 1 L, 1X/DAY,MESNA DILUTED WITH 5%GLUCOSE 1L
     Route: 042
     Dates: start: 20201202, end: 20201202
  4. HOLOXAN [Suspect]
     Active Substance: IFOSFAMIDE
     Indication: HODGKIN^S DISEASE
     Dosage: 5 MG/M2, 1X/DAY (ICE REGIMEN, HOLOXAN 5MG/M2 DILUTED WITH 5%GLUCOSE)
     Route: 042
     Dates: start: 20201202, end: 20201202
  5. CARBOPLATIN. [Suspect]
     Active Substance: CARBOPLATIN
     Indication: HODGKIN^S DISEASE
     Dosage: UNK, CYCLIC,1 UNK, CYCLIC, ICE REGIMEN
     Dates: start: 20201202
  6. VIAFLO GLUCOSE [Suspect]
     Active Substance: DEXTROSE
     Indication: MEDICATION DILUTION
     Dosage: 1 L, 1X/DAY,HOLOXAN DILUTED WITH 5%GLUCOSE 1L
     Route: 042
     Dates: start: 20201202, end: 20201202

REACTIONS (5)
  - Blood pressure abnormal [Recovered/Resolved]
  - Paraesthesia [Recovered/Resolved]
  - Product administration error [Recovered/Resolved]
  - Neuralgia [Recovered/Resolved]
  - Nausea [Recovered/Resolved]

NARRATIVE: CASE EVENT DATE: 20201202
